FAERS Safety Report 11656017 (Version 8)
Quarter: 2017Q2

REPORT INFORMATION
  Report Type: Report from Study
  Country: US (occurrence: US)
  Receive Date: 20151023
  Receipt Date: 20170607
  Transmission Date: 20170829
  Serious: Yes (Death, Hospitalization, Other)
  Sender: FDA-Public Use
  Company Number: US-ACTELION-A-NJ2015-126092

PATIENT
  Age: 79 Year
  Sex: Female
  Weight: 58.5 kg

DRUGS (3)
  1. ADCIRCA [Concomitant]
     Active Substance: TADALAFIL
  2. REMODULIN [Concomitant]
     Active Substance: TREPROSTINIL
     Route: 051
  3. OPSUMIT [Suspect]
     Active Substance: MACITENTAN
     Indication: PULMONARY ARTERIAL HYPERTENSION
     Dosage: 10 MG, QD
     Route: 048
     Dates: start: 20140512

REACTIONS (15)
  - Fatigue [Unknown]
  - Complication associated with device [Unknown]
  - Nausea [Unknown]
  - Condition aggravated [Unknown]
  - Catheter placement [Unknown]
  - Fall [Fatal]
  - Cystitis [Unknown]
  - Neuralgia [Unknown]
  - Hip fracture [Fatal]
  - Bladder cancer [Unknown]
  - Weight decreased [Unknown]
  - Infusion site pain [Unknown]
  - Vomiting [Unknown]
  - Fluid retention [Unknown]
  - Headache [Unknown]

NARRATIVE: CASE EVENT DATE: 201604
